FAERS Safety Report 8118413-3 (Version None)
Quarter: 2012Q1

REPORT INFORMATION
  Report Type: 
  Country: None (occurrence: None)
  Receive Date: 20120207
  Receipt Date: 20120124
  Transmission Date: 20120608
  Serious: Yes (Other)
  Sender: FDA-Public Use
  Company Number: FR-TEVA-320887ISR

PATIENT
  Age: 67 Year
  Sex: Male

DRUGS (1)
  1. DICLOFENAC SODIUM [Suspect]
     Indication: MUSCULOSKELETAL PAIN
     Dosage: 1 DF TOTAL
     Route: 061
     Dates: start: 20120110, end: 20120111

REACTIONS (2)
  - DRUG INEFFECTIVE FOR UNAPPROVED INDICATION [None]
  - TENDON RUPTURE [None]
